FAERS Safety Report 16212522 (Version 2)
Quarter: 2019Q2

REPORT INFORMATION
  Report Type: Spontaneous
  Country: US (occurrence: US)
  Receive Date: 20190418
  Receipt Date: 20190529
  Transmission Date: 20190711
  Serious: No
  Sender: FDA-Public Use
  Company Number: US-MILLICENT HOLDINGS LTD.-MILL20192224

PATIENT
  Age: 48 Year
  Sex: Female

DRUGS (2)
  1. FEMRING [Suspect]
     Active Substance: ESTRADIOL ACETATE
     Dosage: 0.05 MG/DAY
     Route: 067
     Dates: start: 2018
  2. FEMRING [Suspect]
     Active Substance: ESTRADIOL ACETATE
     Indication: MENOPAUSE
     Dosage: 0.05 MG/DAY
     Route: 067
     Dates: start: 20190415

REACTIONS (3)
  - Diarrhoea [Unknown]
  - Device expulsion [Not Recovered/Not Resolved]
  - Product dose omission [None]

NARRATIVE: CASE EVENT DATE: 20190416
